FAERS Safety Report 23953351 (Version 2)
Quarter: 2024Q3

REPORT INFORMATION
  Report Type: Spontaneous
  Country: US (occurrence: US)
  Receive Date: 20240608
  Receipt Date: 20240814
  Transmission Date: 20241017
  Serious: Yes (Other)
  Sender: SPECGX
  Company Number: US-SPECGX-T202301668

PATIENT
  Sex: Male

DRUGS (3)
  1. ACETAMINOPHEN\OXYCODONE HYDROCHLORIDE [Suspect]
     Active Substance: ACETAMINOPHEN\OXYCODONE HYDROCHLORIDE
     Indication: Lyme disease
     Dosage: 1 DOSAGE FORM, QID
     Route: 065
     Dates: start: 202307
  2. ACETAMINOPHEN\OXYCODONE HYDROCHLORIDE [Suspect]
     Active Substance: ACETAMINOPHEN\OXYCODONE HYDROCHLORIDE
     Indication: Pain
  3. ACETAMINOPHEN\HYDROCODONE [Suspect]
     Active Substance: ACETAMINOPHEN\HYDROCODONE
     Indication: Product used for unknown indication
     Dosage: 1 DOSAGE FORM, QID
     Route: 065
     Dates: end: 202302

REACTIONS (4)
  - Dyspnoea [Unknown]
  - Hypersensitivity [Unknown]
  - Nasal congestion [Unknown]
  - Sleep disorder [Unknown]
